FAERS Safety Report 6288060-7 (Version None)
Quarter: 2009Q3

REPORT INFORMATION
  Report Type: 
  Country: None (occurrence: None)
  Receive Date: 20090729
  Receipt Date: 20090717
  Transmission Date: 20100115
  Serious: Yes (Other)
  Sender: FDA-Public Use
  Company Number: PHHY2009GB16537

PATIENT
  Sex: Female

DRUGS (2)
  1. DIOVAN [Suspect]
     Indication: HYPERTENSION
     Dosage: UNK
     Dates: start: 20010501, end: 20090201
  2. OLMETEC [Suspect]
     Dosage: UNK

REACTIONS (6)
  - COLORECTAL CANCER [None]
  - HYPOTENSION [None]
  - POLYP COLORECTAL [None]
  - RECTAL HAEMORRHAGE [None]
  - RECTOSIGMOID CANCER [None]
  - SURGERY [None]
